FAERS Safety Report 16667565 (Version 1)
Quarter: 2019Q3

REPORT INFORMATION
  Report Type: Report from Study
  Country: FR (occurrence: FR)
  Receive Date: 20190805
  Receipt Date: 20190805
  Transmission Date: 20191004
  Serious: Yes (Death)
  Sender: FDA-Public Use
  Company Number: FR-ROCHE-1986841

PATIENT
  Age: 87 Year
  Sex: Female
  Weight: 65 kg

DRUGS (9)
  1. TRASTUZUMAB. [Suspect]
     Active Substance: TRASTUZUMAB
     Indication: HER-2 POSITIVE BREAST CANCER
     Dosage: 600 MG/5ML
     Route: 058
     Dates: start: 20140215, end: 20150204
  2. LETROZOLE. [Concomitant]
     Active Substance: LETROZOLE
     Route: 065
     Dates: start: 20100922
  3. PAMIDRONATE [Concomitant]
     Active Substance: PAMIDRONATE DISODIUM
     Dosage: 90 UNIT NOT REPORTED
     Route: 065
     Dates: start: 20090715
  4. TRASTUZUMAB. [Suspect]
     Active Substance: TRASTUZUMAB
     Indication: HER-2 POSITIVE BREAST CANCER
     Route: 058
     Dates: start: 20150225, end: 20170419
  5. CO-APROVEL [Concomitant]
     Active Substance: HYDROCHLOROTHIAZIDE\IRBESARTAN
     Dosage: DOSE 300 UNIT NOT REPORTED
     Route: 065
  6. PLAVIX [Concomitant]
     Active Substance: CLOPIDOGREL BISULFATE
     Dosage: 75 UNIT  NOT REPORTED
     Route: 065
     Dates: start: 1978
  7. ZOCOR [Concomitant]
     Active Substance: SIMVASTATIN
     Dosage: 20 UNIT NOT REPORTED
     Route: 065
     Dates: start: 1978
  8. PRAXILENE [Concomitant]
     Active Substance: NAFRONYL
     Dosage: 200 UNIT NOT REPORTED
     Route: 065
     Dates: start: 1978
  9. TRASTUZUMAB. [Suspect]
     Active Substance: TRASTUZUMAB
     Indication: HER-2 POSITIVE BREAST CANCER
     Dosage: 6 MG, CYCLES 4-6 OR 1-3 AS PER PROTOCOL
     Route: 042
     Dates: start: 20140211, end: 20140325

REACTIONS (1)
  - Leukaemia [Fatal]

NARRATIVE: CASE EVENT DATE: 20170413
